FAERS Safety Report 9534669 (Version 1)
Quarter: 2013Q3

REPORT INFORMATION
  Report Type: Report from Study
  Country: SE (occurrence: SE)
  Receive Date: 20130918
  Receipt Date: 20130918
  Transmission Date: 20140515
  Serious: Yes (Hospitalization)
  Sender: FDA-Public Use
  Company Number: SE-TEVA-433336USA

PATIENT
  Age: 74 Year
  Sex: Male
  Weight: 90 kg

DRUGS (13)
  1. BENDAMUSTINE [Suspect]
     Indication: NON-HODGKIN^S LYMPHOMA
     Route: 042
     Dates: start: 20121114
  2. RITUXIMAB [Suspect]
     Indication: NON-HODGKIN^S LYMPHOMA
     Route: 042
     Dates: start: 20121114
  3. NOVOMIX [Concomitant]
     Indication: DIABETES MELLITUS
     Route: 058
     Dates: start: 20121115
  4. METFORMIN [Concomitant]
     Indication: DIABETES MELLITUS
     Route: 048
     Dates: start: 20121029
  5. INNOHEP [Concomitant]
     Indication: AORTIC VALVE REPLACEMENT
     Dosage: 9000 IU (INTERNATIONAL UNIT) DAILY;
     Dates: start: 20121003, end: 20121009
  6. SIMVASTATIN [Concomitant]
     Indication: CORONARY ARTERY DISEASE
     Dosage: 40 MILLIGRAM DAILY;
     Route: 048
     Dates: start: 20081217
  7. FLORINEF [Concomitant]
     Indication: HYPOTENSION
     Dosage: .1 MILLIGRAM DAILY;
     Route: 048
     Dates: start: 20120402
  8. AMOXICILLIN W/CLAVULANIC ACID [Concomitant]
     Indication: PNEUMONIA
  9. LACTOBACILLUS ACIDOPHILUS [Concomitant]
     Indication: PNEUMONIA
  10. MOVICOL [Concomitant]
     Indication: INTESTINAL OBSTRUCTION
     Route: 048
     Dates: start: 20121113
  11. SUSCARD [Concomitant]
     Indication: ANGINA PECTORIS
     Route: 048
     Dates: start: 20071210
  12. PARACETAMOL [Concomitant]
     Indication: PAIN
     Route: 048
     Dates: start: 20120120
  13. IMOVANE [Concomitant]
     Indication: SLEEP DISORDER
     Route: 048
     Dates: start: 20120224

REACTIONS (1)
  - Atrial flutter [Recovered/Resolved with Sequelae]
